FAERS Safety Report 12823088 (Version 18)
Quarter: 2019Q3

REPORT INFORMATION
  Report Type: Report from Study
  Country: CA (occurrence: CA)
  Receive Date: 20161007
  Receipt Date: 20190715
  Transmission Date: 20191004
  Serious: Yes (Other)
  Sender: FDA-Public Use
  Company Number: PHHY2011CA37575

PATIENT
  Age: 74 Year
  Sex: Female

DRUGS (9)
  1. DIAMICRON MR [Concomitant]
     Active Substance: GLICLAZIDE
     Indication: PRODUCT USED FOR UNKNOWN INDICATION
     Dosage: 60 MG, UNK (DIE AT SUPPER)
     Route: 048
     Dates: start: 2016
  2. COVERSYL [Concomitant]
     Active Substance: PERINDOPRIL
     Indication: PRODUCT USED FOR UNKNOWN INDICATION
     Dosage: UNK
     Route: 065
  3. SANDOSTATIN LAR DEPOT [Suspect]
     Active Substance: OCTREOTIDE ACETATE
     Dosage: 10 MG, QMO (ONCE A MONTH)
     Route: 030
     Dates: start: 20100610
  4. METOPROLOL. [Suspect]
     Active Substance: METOPROLOL
     Indication: PRODUCT USED FOR UNKNOWN INDICATION
     Dosage: UNK
     Route: 065
  5. NOVO-METOPROL [Concomitant]
     Active Substance: METOPROLOL TARTRATE
     Indication: PRODUCT USED FOR UNKNOWN INDICATION
     Route: 065
  6. SANDOSTATIN LAR DEPOT [Suspect]
     Active Substance: OCTREOTIDE ACETATE
     Indication: GASTRINOMA
     Dosage: 20 MG, QMO (EVERY 4 WEEKS)
     Route: 030
     Dates: start: 20091229
  7. SANDOSTATIN LAR DEPOT [Suspect]
     Active Substance: OCTREOTIDE ACETATE
     Dosage: 20 MG, QMO (EVERY 4 WEEKS)
     Route: 030
     Dates: start: 20150702
  8. FORXIGA [Concomitant]
     Active Substance: DAPAGLIFLOZIN
     Indication: PRODUCT USED FOR UNKNOWN INDICATION
     Dosage: 5 MG, UNK (DIE IN THE MORNING)
     Route: 048
     Dates: start: 2016
  9. SANDOSTATIN LAR DEPOT [Suspect]
     Active Substance: OCTREOTIDE ACETATE
     Dosage: 20 MG, QMO (ONCE A MONTH)
     Route: 030
     Dates: start: 20100721

REACTIONS (19)
  - Anaemia [Unknown]
  - Blood pressure systolic increased [Unknown]
  - Fatigue [Unknown]
  - Blood glucose increased [Unknown]
  - Sputum discoloured [Unknown]
  - Hypoglycaemia [Recovered/Resolved]
  - Malignant polyp [Unknown]
  - Second primary malignancy [Unknown]
  - Respiratory tract infection [Unknown]
  - Body temperature decreased [Unknown]
  - Peripheral coldness [Unknown]
  - Hypertension [Unknown]
  - Haematochezia [Unknown]
  - Cough [Unknown]
  - Blood pressure increased [Unknown]
  - Basal cell carcinoma [Unknown]
  - Foreign body in gastrointestinal tract [Unknown]
  - Hypotension [Unknown]
  - Needle issue [Unknown]

NARRATIVE: CASE EVENT DATE: 20150127
